FAERS Safety Report 5889251-7 (Version None)
Quarter: 2008Q3

REPORT INFORMATION
  Report Type: 
  Country: None (occurrence: None)
  Receive Date: 20080919
  Receipt Date: 20080910
  Transmission Date: 20090109
  Serious: Yes (Other)
  Sender: FDA-Public Use
  Company Number: GB-AMGEN-US307604

PATIENT
  Sex: Female
  Weight: 22.6 kg

DRUGS (4)
  1. ENBREL [Suspect]
     Indication: ARTHRITIS
     Route: 058
     Dates: start: 20050501
  2. FOLIC ACID [Concomitant]
     Route: 048
     Dates: start: 20020301
  3. METHOTREXATE [Concomitant]
     Dosage: UNKNOWN
     Route: 065
  4. DEXAMETHASONE [Concomitant]
     Route: 047
     Dates: start: 20080601

REACTIONS (1)
  - IRIDOCYCLITIS [None]
